FAERS Safety Report 9496804 (Version 1)
Quarter: 2013Q3

REPORT INFORMATION
  Report Type: Report from Study
  Country: US (occurrence: US)
  Receive Date: 20130904
  Receipt Date: 20130904
  Transmission Date: 20140515
  Serious: Yes (Hospitalization)
  Sender: FDA-Public Use
  Company Number: US-JNJFOC-20130814661

PATIENT
  Age: 61 Year
  Sex: Female
  Weight: 99.79 kg

DRUGS (7)
  1. STELARA [Suspect]
     Indication: PSORIASIS
     Route: 058
     Dates: start: 2011
  2. SIMPONI [Suspect]
     Indication: PRODUCT USED FOR UNKNOWN INDICATION
     Route: 058
     Dates: start: 2011
  3. NEXIUM [Concomitant]
     Indication: GASTROOESOPHAGEAL REFLUX DISEASE
     Route: 048
  4. CYMBALTA [Concomitant]
     Indication: DEPRESSION
     Route: 048
  5. BENICAR [Concomitant]
     Indication: HYPERTENSION
     Route: 065
  6. AMBIEN [Concomitant]
     Indication: SLEEP DISORDER THERAPY
     Route: 048
  7. NORCO [Concomitant]
     Indication: PAIN
     Dosage: 10/325
     Route: 048

REACTIONS (3)
  - Hip arthroplasty [Unknown]
  - Decreased immune responsiveness [Unknown]
  - Staphylococcal infection [Unknown]
